FAERS Safety Report 6266619-0 (Version None)
Quarter: 2009Q3

REPORT INFORMATION
  Report Type: 
  Country: None (occurrence: None)
  Receive Date: 20090710
  Receipt Date: 20090629
  Transmission Date: 20100115
  Serious: Yes (Death)
  Sender: FDA-Public Use
  Company Number: ADE# 09-320DPR

PATIENT
  Age: 77 Year
  Sex: Male

DRUGS (7)
  1. DIGOXIN [Suspect]
     Dosage: ONE TABLET DAILY
  2. ATENOLOL [Concomitant]
  3. LISINOPRIL [Concomitant]
  4. HYDROCHLOROTHIAZIDE [Concomitant]
  5. PRAVASTATIN [Concomitant]
  6. WARFARIN SODIUM [Concomitant]
  7. CLONIDINE [Concomitant]

REACTIONS (6)
  - BLOOD PRESSURE INCREASED [None]
  - DYSPNOEA [None]
  - FATIGUE [None]
  - HEART RATE IRREGULAR [None]
  - MUSCLE SPASMS [None]
  - PAIN [None]
